FAERS Safety Report 17398289 (Version 3)
Quarter: 2020Q2

REPORT INFORMATION
  Report Type: Spontaneous
  Country: TW (occurrence: TW)
  Receive Date: 20200210
  Receipt Date: 20200515
  Transmission Date: 20200713
  Serious: Yes (Death, Life-Threatening, Hospitalization)
  Sender: FDA-Public Use
  Company Number: TW-CELGENEUS-TWN-20200110206

PATIENT
  Age: 76 Year
  Sex: Male
  Weight: 81.5 kg

DRUGS (86)
  1. AZACITIDINE. [Suspect]
     Active Substance: AZACITIDINE
     Dosage: 75 MILLIGRAM/SQ. METER
     Route: 058
     Dates: start: 202001
  2. CHLORPHENIRAMINE MALEATE. [Concomitant]
     Active Substance: CHLORPHENIRAMINE MALEATE
     Dosage: 5 MILLIGRAM
     Route: 041
     Dates: start: 20200112
  3. FENTANYL. [Concomitant]
     Active Substance: FENTANYL
     Indication: GINGIVAL PAIN
     Route: 061
     Dates: start: 20190806
  4. FENTANYL. [Concomitant]
     Active Substance: FENTANYL
     Indication: BONE PAIN
     Dosage: 3456 MICROGRAM
     Route: 062
     Dates: start: 20191028, end: 20191224
  5. TRANEXAMIC ACID. [Concomitant]
     Active Substance: TRANEXAMIC ACID
     Dosage: 2000 MILLIGRAM
     Route: 041
     Dates: start: 20200124, end: 20200125
  6. FLUOROMETHOLONE. [Concomitant]
     Active Substance: FLUOROMETHOLONE
     Indication: EYE INFLAMMATION
     Dosage: 2 DROPS
     Route: 047
     Dates: start: 20191126
  7. GLYCYRRHIZIN [Concomitant]
     Active Substance: GLYCYRRHIZIN
     Indication: ALANINE AMINOTRANSFERASE INCREASED
     Dosage: 100 MILLILITER
     Route: 041
     Dates: start: 20200109, end: 20200112
  8. FUROSEMIDE. [Concomitant]
     Active Substance: FUROSEMIDE
     Indication: OEDEMA PERIPHERAL
     Dosage: 40 MILLIGRAM
     Route: 048
     Dates: start: 20190819
  9. DIMETHICONE. [Concomitant]
     Active Substance: DIMETHICONE
     Dosage: 80 MILLIGRAM
     Route: 048
     Dates: start: 20200103, end: 20200114
  10. POTASSIUM GLUCONATE [Concomitant]
     Active Substance: POTASSIUM GLUCONATE
     Indication: HYPOKALAEMIA
     Dosage: 1190 MILLIGRAM
     Route: 048
     Dates: start: 20191226, end: 20200102
  11. POTASSIUM CHLORIDE IN 0.9% NACL [Concomitant]
     Indication: HYPOKALAEMIA
     Dosage: 500 MILLILITER
     Route: 041
     Dates: start: 20200106, end: 20200113
  12. POTASSIUM CHLORIDE IN 0.9% NACL [Concomitant]
     Route: 041
     Dates: start: 20200124
  13. ULTRACET [Concomitant]
     Active Substance: ACETAMINOPHEN\TRAMADOL HYDROCHLORIDE
     Route: 048
     Dates: start: 20191231, end: 20200103
  14. MORPHINE [Concomitant]
     Active Substance: MORPHINE
     Indication: BONE PAIN
     Route: 048
     Dates: start: 20200113, end: 20200125
  15. POTASSIUM CHLORIDE DSW [Concomitant]
     Indication: HYPOKALAEMIA
     Route: 041
     Dates: start: 20200119
  16. REGULAR HUMAN INSULIN [Concomitant]
     Active Substance: INSULIN HUMAN
     Indication: HYPERGLYCAEMIA
     Route: 058
     Dates: start: 20200122
  17. PRACINOSTAT [Concomitant]
     Active Substance: PRACINOSTAT
     Indication: ACUTE MYELOID LEUKAEMIA
     Dosage: 60 MILLIGRAM
     Route: 048
     Dates: start: 20190604, end: 20200116
  18. CHLORPHENIRAMINE MALEATE. [Concomitant]
     Active Substance: CHLORPHENIRAMINE MALEATE
     Indication: HYPERSENSITIVITY
     Dosage: 5 MILLIGRAM
     Route: 041
     Dates: start: 20191226
  19. PETHIDINE [Concomitant]
     Active Substance: MEPERIDINE
     Indication: ADVERSE DRUG REACTION
     Dosage: 25 MILLIGRAM
     Route: 041
     Dates: start: 20200109
  20. HYDROCORTISONE. [Concomitant]
     Active Substance: HYDROCORTISONE
     Indication: ADVERSE DRUG REACTION
     Dosage: 100 MILLIGRAM
     Route: 041
     Dates: start: 20191229, end: 20200103
  21. HYDROCORTISONE. [Concomitant]
     Active Substance: HYDROCORTISONE
     Dosage: 100 MILLIGRAM
     Route: 041
     Dates: start: 20200109
  22. FENTANYL. [Concomitant]
     Active Substance: FENTANYL
     Indication: CELLULITIS ORBITAL
     Dosage: 5184
     Route: 062
     Dates: start: 20191224, end: 20200103
  23. SULFAMETHOXAZOLE [Concomitant]
     Active Substance: SULFAMETHOXAZOLE
     Indication: CATARACT
     Dosage: 1 DROPS
     Route: 047
     Dates: start: 20190819
  24. SULFAMETHOXAZOLE [Concomitant]
     Active Substance: SULFAMETHOXAZOLE
     Dosage: 2 DROPS
     Route: 047
     Dates: start: 20191126
  25. DIMETHICONE. [Concomitant]
     Active Substance: DIMETHICONE
     Dosage: 40 MILLIGRAM
     Route: 048
     Dates: start: 20191223, end: 20191225
  26. ALBUMIN 25% [Concomitant]
     Active Substance: ALBUMIN HUMAN
     Indication: HYPOALBUMINAEMIA
  27. XYLMOL [Concomitant]
     Indication: HAEMORRHOIDS
     Route: 054
     Dates: start: 20191231, end: 20200107
  28. APREPITANT. [Concomitant]
     Active Substance: APREPITANT
     Indication: NAUSEA
     Dosage: 125 MILLIGRAM
     Route: 048
     Dates: start: 20191217, end: 20191221
  29. ULTRACET [Concomitant]
     Active Substance: ACETAMINOPHEN\TRAMADOL HYDROCHLORIDE
     Indication: PAROTITIS
     Route: 048
     Dates: start: 20191217, end: 20191222
  30. ULTRACET [Concomitant]
     Active Substance: ACETAMINOPHEN\TRAMADOL HYDROCHLORIDE
     Route: 048
     Dates: start: 20200114
  31. POTASSIUM CHLORIDE DSW [Concomitant]
     Dosage: 500 MILLILITER
     Route: 041
     Dates: start: 20200122
  32. POVIDONE IODINE MOUTHWASH AND GARGLE [Concomitant]
     Indication: MOUTH ULCERATION
     Dosage: 30 MILLILITER
     Route: 048
     Dates: start: 20200103, end: 20200119
  33. URSODESOXYCHOLIC ACID [Concomitant]
     Active Substance: URSODIOL
     Indication: HYPERBILIRUBINAEMIA
     Dosage: 300 MILLIGRAM
     Route: 048
     Dates: start: 20200117, end: 20200118
  34. CHLORPHENIRAMINE MALEATE. [Concomitant]
     Active Substance: CHLORPHENIRAMINE MALEATE
     Dosage: 5 MILLIGRAM
     Route: 041
     Dates: start: 20200104
  35. CHLORPHENIRAMINE MALEATE. [Concomitant]
     Active Substance: CHLORPHENIRAMINE MALEATE
     Dosage: 5 MILLIGRAM
     Route: 041
     Dates: start: 20200114
  36. NICORANDIL [Concomitant]
     Active Substance: NICORANDIL
     Indication: MYOCARDIAL ISCHAEMIA
     Dosage: 10 MILLIGRAM
     Route: 048
     Dates: start: 20190917
  37. FENTANYL. [Concomitant]
     Active Substance: FENTANYL
     Dosage: 864 MICROGRAM
     Route: 062
     Dates: start: 20200118, end: 20200125
  38. LACTULOSE. [Concomitant]
     Active Substance: LACTULOSE
     Indication: CONSTIPATION
     Dosage: 90 MILLILITER
     Route: 048
     Dates: start: 20191224, end: 20191225
  39. K-CITRATE [Concomitant]
     Indication: HYPOKALAEMIA
     Dosage: 1 PACKAGE
     Route: 048
     Dates: start: 20200118, end: 20200120
  40. CHLORPHENIRAMINE MALEATE. [Concomitant]
     Active Substance: CHLORPHENIRAMINE MALEATE
     Indication: ADVERSE DRUG REACTION
     Dosage: 5 MILLIGRAM
     Route: 041
     Dates: start: 20191224
  41. CHLORPHENIRAMINE MALEATE. [Concomitant]
     Active Substance: CHLORPHENIRAMINE MALEATE
     Dosage: 5 MILLIGRAM
     Route: 041
     Dates: start: 20191229
  42. FENTANYL. [Concomitant]
     Active Substance: FENTANYL
     Dosage: 4320 MICROGRAM
     Route: 062
     Dates: start: 20200110, end: 20200118
  43. ALCOS-ANAL SUPP [Concomitant]
     Route: 054
     Dates: start: 20191227, end: 20191231
  44. FUROSEMIDE. [Concomitant]
     Active Substance: FUROSEMIDE
     Indication: RESPIRATORY FAILURE
     Dosage: 20 MILLIGRAM
     Route: 041
     Dates: start: 20191225
  45. FUROSEMIDE. [Concomitant]
     Active Substance: FUROSEMIDE
     Dosage: 20 MILLIGRAM
     Route: 041
     Dates: start: 20200123, end: 20200123
  46. ULTRACET [Concomitant]
     Active Substance: ACETAMINOPHEN\TRAMADOL HYDROCHLORIDE
     Indication: BONE PAIN
     Route: 048
     Dates: start: 20191222, end: 20191231
  47. BISACODYL. [Concomitant]
     Active Substance: BISACODYL
     Indication: CONSTIPATION
     Dosage: 20 MILLIGRAM
     Route: 054
     Dates: start: 20191224, end: 20191231
  48. SODIUM CHLORIDE 0.45% [Concomitant]
     Active Substance: SODIUM CHLORIDE
     Indication: EPISTAXIS
     Dosage: 9 MILLILITER
     Route: 055
     Dates: start: 20200117, end: 20200118
  49. EPINEPHRINE. [Concomitant]
     Active Substance: EPINEPHRINE
     Indication: EPISTAXIS
     Route: 055
     Dates: start: 20200123
  50. DILTIAZEM. [Concomitant]
     Active Substance: DILTIAZEM
     Indication: MYOCARDIAL ISCHAEMIA
     Dosage: 60 MILLIGRAM
     Route: 048
     Dates: start: 20190917, end: 20200117
  51. TRANEXAMIC ACID. [Concomitant]
     Active Substance: TRANEXAMIC ACID
     Indication: EPISTAXIS
     Dosage: 500 MILLIGRAM
     Route: 041
     Dates: start: 20191224, end: 20191231
  52. TRANEXAMIC ACID. [Concomitant]
     Active Substance: TRANEXAMIC ACID
     Dosage: 500 MILLIGRAM
     Route: 041
     Dates: start: 20200103, end: 20200114
  53. DIMETHICONE. [Concomitant]
     Active Substance: DIMETHICONE
     Indication: ABDOMINAL DISTENSION
     Dosage: 80 MILLIGRAM
     Route: 048
     Dates: start: 20191101, end: 20191223
  54. ALBUMIN 25% [Concomitant]
     Active Substance: ALBUMIN HUMAN
     Indication: DECREASED APPETITE
     Dosage: 50 MILLILITER
     Route: 041
     Dates: start: 20200117, end: 20200125
  55. POTASSIUM GLUCONATE [Concomitant]
     Active Substance: POTASSIUM GLUCONATE
     Dosage: 5355 MILLIGRAM
     Route: 048
     Dates: start: 20200117, end: 20200120
  56. BETHANECHOL [Concomitant]
     Active Substance: BETHANECHOL
     Indication: BENIGN PROSTATIC HYPERPLASIA
     Dosage: 75 MILLIGRAM
     Route: 048
     Dates: start: 20191028
  57. ULTRACET [Concomitant]
     Active Substance: ACETAMINOPHEN\TRAMADOL HYDROCHLORIDE
     Route: 048
     Dates: start: 20200112, end: 20200118
  58. DEXAMETHASONE. [Concomitant]
     Active Substance: DEXAMETHASONE
     Indication: NEOPLASM MALIGNANT
     Route: 061
     Dates: start: 20200111, end: 20200119
  59. POTASSIUM CHLORIDE DSW [Concomitant]
     Route: 041
     Dates: start: 20200121
  60. AZACITIDINE. [Suspect]
     Active Substance: AZACITIDINE
     Indication: ACUTE MYELOID LEUKAEMIA
     Dosage: 75 MILLIGRAM/SQ. METER
     Route: 058
     Dates: start: 20190604, end: 20200118
  61. CHLORPHENIRAMINE MALEATE. [Concomitant]
     Active Substance: CHLORPHENIRAMINE MALEATE
     Dosage: 5 MILLIGRAM
     Route: 041
     Dates: start: 20200109
  62. HYDROCORTISONE. [Concomitant]
     Active Substance: HYDROCORTISONE
     Indication: HYPERSENSITIVITY
     Dosage: 100 MILLIGRAM
     Route: 041
     Dates: start: 20200104
  63. HYDROCORTISONE. [Concomitant]
     Active Substance: HYDROCORTISONE
     Dosage: 100 MILLIGRAM
     Route: 041
     Dates: start: 20200112
  64. FENTANYL. [Concomitant]
     Active Substance: FENTANYL
     Dosage: 3456 MICROGRAM
     Route: 062
     Dates: start: 20200103, end: 20200110
  65. TRANEXAMIC ACID. [Concomitant]
     Active Substance: TRANEXAMIC ACID
     Indication: HAEMORRHAGE
     Route: 048
     Dates: start: 20191119, end: 20191225
  66. TRANEXAMIC ACID. [Concomitant]
     Active Substance: TRANEXAMIC ACID
     Dosage: 250 MILLIGRAM
     Route: 041
     Dates: start: 20200114
  67. SENNOSIDES. [Concomitant]
     Active Substance: SENNOSIDES
     Indication: CONSTIPATION
     Dosage: 48 MILLIGRAM
     Route: 048
     Dates: start: 20190615
  68. DIMETHICONE. [Concomitant]
     Active Substance: DIMETHICONE
     Dosage: 40 MILLIGRAM
     Route: 048
     Dates: start: 20191230, end: 20200103
  69. POTASSIUM GLUCONATE [Concomitant]
     Active Substance: POTASSIUM GLUCONATE
     Dosage: 1190 MILLIGRAM
     Route: 048
     Dates: start: 20200106, end: 20200108
  70. APREPITANT. [Concomitant]
     Active Substance: APREPITANT
     Indication: VOMITING
     Dosage: 125 MILLIGRAM
     Route: 048
     Dates: start: 20191224, end: 20191225
  71. ULTRACET [Concomitant]
     Active Substance: ACETAMINOPHEN\TRAMADOL HYDROCHLORIDE
     Route: 048
     Dates: start: 20200113
  72. ALCOS-ANAL SUPP [Concomitant]
     Indication: CONSTIPATION
     Route: 054
     Dates: start: 20191119, end: 20191222
  73. POTASSIUM CHLORIDE DSW [Concomitant]
     Dosage: 1000 MILLILITER
     Route: 041
     Dates: start: 20200121
  74. PRACINOSTAT [Concomitant]
     Active Substance: PRACINOSTAT
     Dosage: 60 MILLIGRAM
     Route: 048
     Dates: start: 202001
  75. CHLORPHENIRAMINE MALEATE. [Concomitant]
     Active Substance: CHLORPHENIRAMINE MALEATE
     Dosage: 5 MILLIGRAM
     Route: 041
     Dates: start: 20200103
  76. CHLORPHENIRAMINE MALEATE. [Concomitant]
     Active Substance: CHLORPHENIRAMINE MALEATE
     Dosage: 5 MILLIGRAM
     Route: 041
     Dates: start: 20200106
  77. FENTANYL. [Concomitant]
     Active Substance: FENTANYL
     Dosage: 3600 MICROGRAM
     Route: 062
     Dates: start: 20200118, end: 20200125
  78. TRANEXAMIC ACID. [Concomitant]
     Active Substance: TRANEXAMIC ACID
     Route: 048
     Dates: start: 20191231, end: 20200103
  79. SENNOSIDES. [Concomitant]
     Active Substance: SENNOSIDES
     Dosage: 48 MILLIGRAM
     Route: 048
     Dates: start: 20191029, end: 20200113
  80. THEOPHYLLINE [Concomitant]
     Active Substance: THEOPHYLLINE ANHYDROUS
     Indication: PULMONARY FIBROSIS
     Dosage: 125 MILLIGRAM
     Route: 048
     Dates: start: 20190917
  81. DIMETHICONE. [Concomitant]
     Active Substance: DIMETHICONE
     Dosage: 80 MILLIGRAM
     Route: 048
     Dates: start: 20191225, end: 20191230
  82. POTASSIUM GLUCONATE [Concomitant]
     Active Substance: POTASSIUM GLUCONATE
     Dosage: 7140 MILLIGRAM
     Route: 048
     Dates: start: 20200114, end: 20200117
  83. BISACODYL. [Concomitant]
     Active Substance: BISACODYL
     Dosage: 20 MILLIGRAM
     Route: 054
     Dates: start: 20200106
  84. DEXTROMETHORPHAN [Concomitant]
     Active Substance: DEXTROMETHORPHAN
     Indication: PNEUMONIA
     Dosage: 90 MILLIGRAM
     Route: 048
     Dates: start: 20200118
  85. NYSTATIN. [Concomitant]
     Active Substance: NYSTATIN
     Indication: MOUTH ULCERATION
     Dosage: 12 MILLILITER
     Route: 048
     Dates: start: 20200114, end: 20200117
  86. SODIUM CHLORIDE 0.45% [Concomitant]
     Active Substance: SODIUM CHLORIDE
     Route: 055
     Dates: start: 20200123

REACTIONS (4)
  - Decreased appetite [Not Recovered/Not Resolved]
  - Septic shock [Fatal]
  - Febrile neutropenia [Unknown]
  - Respiratory failure [Not Recovered/Not Resolved]

NARRATIVE: CASE EVENT DATE: 20200103
